FAERS Safety Report 7556818-X (Version None)
Quarter: 2011Q2

REPORT INFORMATION
  Report Type: 
  Country: None (occurrence: None)
  Receive Date: 20110616
  Receipt Date: 20110616
  Transmission Date: 20111010
  Serious: Yes (Hospitalization)
  Sender: FDA-Public Use
  Company Number: None

PATIENT
  Age: 42 Year
  Sex: Male
  Weight: 119.7496 kg

DRUGS (7)
  1. MACUGEN [Suspect]
     Indication: DIABETIC RETINAL OEDEMA
     Dosage: 0.3MG / Q6W / 046
     Dates: start: 20101222
  2. MARIJUANA [Concomitant]
  3. METFORMIN HCL [Concomitant]
  4. GLUCOTROL XL [Concomitant]
  5. ALBUTEROL SULFATE AUTOHALER [Concomitant]
  6. ACCUPRIL [Concomitant]
  7. ASPIRIN [Concomitant]

REACTIONS (5)
  - HEADACHE [None]
  - VOMITING [None]
  - BLOOD GLUCOSE INCREASED [None]
  - PNEUMONIA [None]
  - DIARRHOEA [None]
